FAERS Safety Report 4555863-6 (Version None)
Quarter: 2005Q1

REPORT INFORMATION
  Report Type: 
  Country: None (occurrence: None)
  Receive Date: 20050111
  Receipt Date: 20041124
  Transmission Date: 20050727
  Serious: No
  Sender: FDA-Public Use
  Company Number: 2004S1000264

PATIENT
  Age: 13 Year
  Sex: Female
  Weight: 38.5 kg

DRUGS (4)
  1. CUBICIN [Suspect]
     Indication: ENDOCARDITIS
     Dosage: 6 MG/KG;IV
     Route: 042
     Dates: start: 20041122
  2. GENTAMICIN [Suspect]
     Indication: ENDOCARDITIS
  3. VANCOMYCIN [Concomitant]
  4. RIFAMPIN [Concomitant]

REACTIONS (1)
  - BLOOD CREATINE INCREASED [None]
